FAERS Safety Report 8899278 (Version 1)
Quarter: 2012Q4

REPORT INFORMATION
  Report Type: 
  Country: US (occurrence: US)
  Receive Date: 20121108
  Receipt Date: 20121108
  Transmission Date: 20130627
  Serious: No
  Sender: FDA-Public Use
  Company Number: US-AMGEN-USASP2012033414

PATIENT
  Sex: Female

DRUGS (18)
  1. ENBREL [Suspect]
     Indication: RHEUMATOID ARTHRITIS
     Dosage: 50 mg, qwk
     Dates: start: 201202
  2. VITAMIN D /00107901/ [Concomitant]
     Dosage: UNK
  3. PREMARIN [Concomitant]
     Dosage: UNK
  4. FUROSEMIDE [Concomitant]
     Dosage: UNK
  5. SALSALATE [Concomitant]
     Dosage: UNK
  6. ASPIRIN [Concomitant]
     Dosage: UNK
  7. VITAMIN C                          /00008001/ [Concomitant]
     Dosage: UNK
  8. ACIPHEX [Concomitant]
     Dosage: UNK
  9. CETIRIZINE [Concomitant]
     Dosage: UNK
  10. ARAVA [Concomitant]
     Dosage: UNK
  11. MAGNESIUM OXIDE [Concomitant]
     Dosage: UNK
  12. SPIRIVA [Concomitant]
     Dosage: UNK
  13. CALCIUM CITRATE [Concomitant]
     Dosage: UNK
  14. VITA VITAMIN E                     /00110501/ [Concomitant]
     Dosage: UNK
  15. SEREVENT [Concomitant]
     Dosage: UNK
  16. RECLAST [Concomitant]
     Dosage: UNK
  17. ALBUTEROL SULFATE [Concomitant]
     Dosage: UNK
  18. MULTIVITAMINS, PLAIN [Concomitant]
     Dosage: UNK

REACTIONS (3)
  - Skin papilloma [Unknown]
  - Injection site reaction [Unknown]
  - Ear infection [Unknown]
